FAERS Safety Report 12408582 (Version 1)
Quarter: 2016Q2

REPORT INFORMATION
  Report Type: Spontaneous
  Country: BR (occurrence: BR)
  Receive Date: 20160526
  Receipt Date: 20160526
  Transmission Date: 20160815
  Serious: Yes (Hospitalization, Other)
  Sender: FDA-Public Use
  Company Number: BR-PFIZER INC-2016196092

PATIENT
  Age: 64 Year
  Sex: Female
  Weight: 61 kg

DRUGS (5)
  1. ALPHAGAN P [Concomitant]
     Active Substance: BRIMONIDINE TARTRATE
     Indication: GLAUCOMA
     Dosage: UNK
     Dates: start: 2012
  2. XALATAN [Suspect]
     Active Substance: LATANOPROST
     Indication: GLAUCOMA
     Dosage: 2 GTT (1 DROP IN EACH EYE), AT NIGHT
     Route: 047
     Dates: start: 2012
  3. AZOPT [Concomitant]
     Active Substance: BRINZOLAMIDE
     Indication: GLAUCOMA
     Dosage: UNK, 2X/DAY
     Dates: start: 2012
  4. XALATAN [Suspect]
     Active Substance: LATANOPROST
     Dosage: 2 GTT (1 DROP IN EACH EYE), AT NIGHT
     Route: 047
  5. FORMOTEROL [Concomitant]
     Active Substance: FORMOTEROL
     Indication: EMPHYSEMA

REACTIONS (4)
  - Pneumonia fungal [Recovered/Resolved]
  - Drug ineffective [Recovered/Resolved]
  - Incorrect dose administered [Recovered/Resolved]
  - Product dropper issue [Recovered/Resolved]

NARRATIVE: CASE EVENT DATE: 201504
